FAERS Safety Report 10913861 (Version 3)
Quarter: 2015Q2

REPORT INFORMATION
  Report Type: Spontaneous
  Country: FR (occurrence: FR)
  Receive Date: 20150313
  Receipt Date: 20150511
  Transmission Date: 20150821
  Serious: Yes (Hospitalization, Other)
  Sender: FDA-Public Use
  Company Number: PHHY2011FR107432

PATIENT
  Age: 40 Year
  Sex: Female

DRUGS (18)
  1. TOPALGIC ^HOUDE^ [Concomitant]
     Active Substance: TRAMADOL
     Indication: PRODUCT USED FOR UNKNOWN INDICATION
     Dosage: 2 OT, BID
     Route: 065
  2. RETINOL [Concomitant]
     Active Substance: RETINOL
     Indication: PRODUCT USED FOR UNKNOWN INDICATION
     Route: 065
  3. TEGRETOL [Suspect]
     Active Substance: CARBAMAZEPINE
     Indication: DEPRESSION
     Dosage: 1 DF, QD (IN THE EVENING)
     Route: 065
  4. TEGRETOL [Suspect]
     Active Substance: CARBAMAZEPINE
     Indication: AFFECT LABILITY
     Dosage: 1.5 DF, QD (HALF IN THE MORNING AND 1 TABLET IN THE EVENING)
     Route: 065
     Dates: start: 20110928
  5. DAIVOBET [Concomitant]
     Active Substance: BETAMETHASONE DIPROPIONATE\CALCIPOTRIENE
     Indication: PRODUCT USED FOR UNKNOWN INDICATION
     Route: 065
  6. TEGRETOL [Suspect]
     Active Substance: CARBAMAZEPINE
     Indication: POST-TRAUMATIC STRESS DISORDER
     Dosage: 0.5 DF, QD (IN THE EVENING)
     Route: 065
     Dates: start: 20110928
  7. SERESTA [Concomitant]
     Active Substance: OXAZEPAM
     Indication: SLEEP DISORDER
     Dosage: 1 DF, QD (IN THE MORNING)
     Route: 065
     Dates: start: 20110828
  8. DEXERYL                            /00557601/ [Concomitant]
     Active Substance: GLYCERIN\PARAFFIN
     Indication: PRODUCT USED FOR UNKNOWN INDICATION
     Route: 065
  9. DACRYOSERUM [Concomitant]
     Active Substance: BORIC ACID\SODIUM BORATE
     Indication: PRODUCT USED FOR UNKNOWN INDICATION
     Dosage: UNK, QD (IN THE MORNING IN BOTH EYES)
     Route: 047
  10. SERESTA [Concomitant]
     Active Substance: OXAZEPAM
     Indication: INSOMNIA
  11. DIPROSONE [Concomitant]
     Active Substance: BETAMETHASONE DIPROPIONATE
     Indication: PRODUCT USED FOR UNKNOWN INDICATION
     Route: 065
  12. CYMBALTA [Concomitant]
     Active Substance: DULOXETINE HYDROCHLORIDE
     Indication: PRODUCT USED FOR UNKNOWN INDICATION
     Dosage: 1 DF, QD (IN THE EVENING)
     Route: 065
  13. NORSET [Concomitant]
     Active Substance: MIRTAZAPINE
     Indication: PRODUCT USED FOR UNKNOWN INDICATION
     Route: 065
  14. DAIVONEX [Concomitant]
     Active Substance: CALCIPOTRIENE
     Indication: PRODUCT USED FOR UNKNOWN INDICATION
     Route: 065
  15. SEROPLEX [Concomitant]
     Active Substance: ESCITALOPRAM OXALATE
     Indication: AFFECTIVE DISORDER
     Dosage: 1 DF, QD (IN THE MORNING)
     Route: 065
  16. DERMOVAL [Concomitant]
     Active Substance: CLOBETASOL
     Indication: PRODUCT USED FOR UNKNOWN INDICATION
     Route: 065
  17. AERIUS [Concomitant]
     Active Substance: DESLORATADINE
     Indication: PRODUCT USED FOR UNKNOWN INDICATION
     Route: 065
  18. LARGACTIL [Concomitant]
     Active Substance: CHLORPROMAZINE
     Indication: PRODUCT USED FOR UNKNOWN INDICATION
     Route: 065

REACTIONS (104)
  - Rash erythematous [Recovered/Resolved]
  - Sjogren^s syndrome [Unknown]
  - Lip erosion [Recovered/Resolved]
  - Psoriasis [Not Recovered/Not Resolved]
  - Psoriatic arthropathy [Unknown]
  - Skin depigmentation [Unknown]
  - Mastitis [Unknown]
  - General physical health deterioration [Unknown]
  - Epstein-Barr virus test positive [Recovered/Resolved]
  - Poor quality sleep [Not Recovered/Not Resolved]
  - Presbyopia [Unknown]
  - Drug reaction with eosinophilia and systemic symptoms [Recovered/Resolved with Sequelae]
  - Rash maculo-papular [Recovered/Resolved]
  - Lymphadenopathy [Recovered/Resolved]
  - Toxic epidermal necrolysis [Unknown]
  - Interstitial lung disease [Recovering/Resolving]
  - Ocular hypertension [Unknown]
  - Insomnia [Unknown]
  - Breast pain [Unknown]
  - Breast induration [Unknown]
  - Mental disorder [Unknown]
  - Antinuclear antibody positive [Recovered/Resolved]
  - Axillary pain [Unknown]
  - Back pain [Not Recovered/Not Resolved]
  - Photosensitivity reaction [Unknown]
  - Gastrooesophageal reflux disease [Unknown]
  - Parinaud syndrome [Unknown]
  - Dry eye [Unknown]
  - Eye irritation [Not Recovered/Not Resolved]
  - Lip exfoliation [Unknown]
  - Ocular discomfort [Not Recovered/Not Resolved]
  - Skin graft detachment [Unknown]
  - Blister [Recovered/Resolved]
  - Skin plaque [Unknown]
  - Staphylococcus test positive [Recovered/Resolved]
  - Cardiac murmur [Recovered/Resolved]
  - Gait disturbance [Unknown]
  - Pain [Unknown]
  - Noninfective gingivitis [Unknown]
  - Mouth haemorrhage [Unknown]
  - Hypertonia [Unknown]
  - Cervicitis human papilloma virus [Recovered/Resolved]
  - Conjunctival hyperaemia [Recovered/Resolved]
  - Xeroderma [Unknown]
  - Proteus test positive [Recovered/Resolved]
  - Parvovirus B19 test positive [Recovered/Resolved]
  - Herpes simplex serology positive [Recovered/Resolved]
  - Gingivitis [Unknown]
  - Dermatitis bullous [Recovered/Resolved]
  - Rash macular [Recovered/Resolved]
  - Fear of death [Unknown]
  - Liver function test abnormal [Unknown]
  - Arthralgia [Recovering/Resolving]
  - CD4 lymphocytes abnormal [Recovered/Resolved]
  - Viral pharyngitis [Recovered/Resolved]
  - Photophobia [Not Recovered/Not Resolved]
  - Meibomianitis [Recovered/Resolved]
  - Anxiety [Unknown]
  - Skin irritation [Unknown]
  - Inflammation [Unknown]
  - Aggression [Unknown]
  - Vomiting [Unknown]
  - Fatigue [Recovering/Resolving]
  - Gingival atrophy [Unknown]
  - Myalgia [Recovered/Resolved]
  - Pyrexia [Recovered/Resolved]
  - Nikolsky^s sign [Recovered/Resolved]
  - Face oedema [Recovered/Resolved]
  - Pruritus genital [Recovered/Resolved]
  - Pain of skin [Unknown]
  - Lymphadenopathy [Unknown]
  - General physical condition abnormal [Unknown]
  - Musculoskeletal chest pain [Unknown]
  - Musculoskeletal pain [Unknown]
  - Goitre [Unknown]
  - Stevens-Johnson syndrome [Recovered/Resolved with Sequelae]
  - Paraesthesia [Recovered/Resolved]
  - Mucosal erosion [Unknown]
  - Lip dry [Unknown]
  - Dyspnoea exertional [Unknown]
  - Erythema [Unknown]
  - Guttate psoriasis [Unknown]
  - Skin exfoliation [Unknown]
  - Breast inflammation [Unknown]
  - Breast cyst [Unknown]
  - Sexual dysfunction [Unknown]
  - Quality of life decreased [Unknown]
  - Rheumatic disorder [Unknown]
  - Neck pain [Not Recovered/Not Resolved]
  - Musculoskeletal stiffness [Not Recovered/Not Resolved]
  - Tooth infection [Unknown]
  - Odynophagia [Recovered/Resolved]
  - Enanthema [Recovered/Resolved]
  - Nail disorder [Recovered/Resolved]
  - Palmoplantar keratoderma [Unknown]
  - Rash pustular [Unknown]
  - Skin exfoliation [Recovered/Resolved]
  - Dermatitis psoriasiform [Not Recovered/Not Resolved]
  - Breast enlargement [Unknown]
  - Eye disorder [Unknown]
  - Injury [Unknown]
  - Dysstasia [Unknown]
  - Inflammatory pain [Not Recovered/Not Resolved]
  - Thyroid cyst [Unknown]

NARRATIVE: CASE EVENT DATE: 20111008
